FAERS Safety Report 25055004 (Version 3)
Quarter: 2025Q4

REPORT INFORMATION
  Report Type: Report from Study
  Country: US (occurrence: US)
  Receive Date: 20250308
  Receipt Date: 20251005
  Transmission Date: 20260118
  Serious: Yes (Other)
  Sender: ABBVIE
  Company Number: US-ABBVIE-6165518

PATIENT
  Age: 82 Year
  Sex: Female

DRUGS (1)
  1. IMBRUVICA [Suspect]
     Active Substance: IBRUTINIB
     Indication: Waldenstrom^s macroglobulinaemia
     Route: 048
     Dates: start: 202205, end: 2025

REACTIONS (8)
  - Knee operation [Unknown]
  - Eye pain [Unknown]
  - Urinary tract infection [Unknown]
  - Eye haemorrhage [Unknown]
  - Retinal haemorrhage [Unknown]
  - Cataract [Unknown]
  - Skin discolouration [Unknown]
  - Rash macular [Unknown]

NARRATIVE: CASE EVENT DATE: 20250101
